FAERS Safety Report 4315713-X (Version None)
Quarter: 2004Q1

REPORT INFORMATION
  Report Type: 
  Country: None (occurrence: None)
  Receive Date: 20040303
  Receipt Date: 20030821
  Transmission Date: 20041129
  Serious: Yes (Other)
  Sender: FDA-Public Use
  Company Number: 200322693BWH

PATIENT
  Age: 66 Year
  Sex: Female

DRUGS (2)
  1. TRASYLOL [Suspect]
     Indication: AORTIC VALVE REPLACEMENT
  2. TRASYLOL [Suspect]
     Indication: CORONARY ARTERY SURGERY

REACTIONS (2)
  - PROCEDURAL HYPOTENSION [None]
  - VASCULAR GRAFT OCCLUSION [None]
